FAERS Safety Report 8962646 (Version 3)
Quarter: 2013Q2

REPORT INFORMATION
  Report Type: Spontaneous
  Country: US (occurrence: US)
  Receive Date: 20121214
  Receipt Date: 20130619
  Transmission Date: 20140414
  Serious: Yes (Other)
  Sender: FDA-Public Use
  Company Number: PHEH2012US024292

PATIENT
  Sex: Female

DRUGS (2)
  1. VIVELLE DOT [Suspect]
     Dosage: 0.1 MG, QW2 (TWICE WEEKLY)
     Route: 062
  2. PROGESTERONE [Concomitant]
     Dosage: 200 MG, UNK

REACTIONS (3)
  - Supraventricular tachycardia [Unknown]
  - Post procedural complication [Unknown]
  - Product adhesion issue [Unknown]
